FAERS Safety Report 11275035 (Version 1)
Quarter: 2015Q3

REPORT INFORMATION
  Report Type: Spontaneous
  Country: JP (occurrence: JP)
  Receive Date: 20150716
  Receipt Date: 20150716
  Transmission Date: 20151125
  Serious: Yes (Hospitalization)
  Sender: FDA-Public Use
  Company Number: JP-ORION CORPORATION ORION PHARMA-ENT 2015-0943

PATIENT

DRUGS (2)
  1. COMTAN [Suspect]
     Active Substance: ENTACAPONE
     Indication: PARKINSON^S DISEASE
     Route: 048
  2. L DOPA [Suspect]
     Active Substance: LEVODOPA
     Route: 048

REACTIONS (2)
  - Urinary incontinence [Unknown]
  - Drug effect decreased [Unknown]
